FAERS Safety Report 9796340 (Version 3)
Quarter: 2014Q2

REPORT INFORMATION
  Report Type: Report from Study
  Country: US (occurrence: US)
  Receive Date: 20140103
  Receipt Date: 20140512
  Transmission Date: 20141212
  Serious: Yes (Hospitalization)
  Sender: FDA-Public Use
  Company Number: US-SA-2013SA136143

PATIENT
  Age: 6 Year
  Sex: Female
  Weight: 23 kg

DRUGS (20)
  1. SARGRAMOSTIM [Suspect]
     Indication: NEUROBLASTOMA
     Dosage: 230MCG 1 IN 1
     Route: 058
     Dates: start: 20121214, end: 20121227
  2. MONOCLONAL ANTIBODY CH14.18 [Suspect]
     Indication: NEUROBLASTOMA
     Route: 042
     Dates: start: 20121217, end: 20121220
  3. ACETAMINOPHEN [Concomitant]
     Indication: PREMEDICATION
     Route: 048
  4. ACETAMINOPHEN [Concomitant]
     Indication: PYREXIA
     Route: 048
  5. ACYCLOVIR [Concomitant]
     Indication: ANTIVIRAL PROPHYLAXIS
     Route: 048
  6. SALBUTAMOL [Concomitant]
     Indication: ASTHMA
     Dosage: 2 PUFFS (2 IN 1D)
     Route: 055
     Dates: start: 20121214
  7. BECLOMETHASONE DIPROPIONATE [Concomitant]
     Indication: ASTHMA
     Dosage: INHALANT, 2 PUFFS (2 IN 1 D)
     Route: 055
     Dates: start: 20121214
  8. CYPROHEPTADINE [Concomitant]
     Indication: DECREASED APPETITE
     Route: 048
     Dates: start: 20121214
  9. BACTRIM [Concomitant]
     Indication: ANTIFUNGAL PROPHYLAXIS
     Route: 048
     Dates: start: 20121214
  10. DIPHENHYDRAMINE [Concomitant]
     Indication: PRURITUS
     Route: 042
     Dates: start: 20121217, end: 20121222
  11. DIPHENHYDRAMINE [Concomitant]
     Indication: PREMEDICATION
     Route: 042
     Dates: start: 20121217, end: 20121222
  12. DIPHENHYDRAMINE [Concomitant]
     Indication: PRURITUS
     Route: 042
     Dates: start: 20121217
  13. DIPHENHYDRAMINE [Concomitant]
     Indication: PREMEDICATION
     Route: 042
     Dates: start: 20121217
  14. MORPHINE [Concomitant]
     Indication: PAIN
     Route: 042
     Dates: start: 20121217, end: 20121221
  15. ONDANSETRON [Concomitant]
     Indication: NAUSEA
     Route: 042
     Dates: start: 20121217, end: 20121221
  16. ONDANSETRON [Concomitant]
     Indication: NAUSEA
     Route: 042
     Dates: start: 20121217, end: 20121222
  17. ONDANSETRON [Concomitant]
     Indication: NAUSEA
     Route: 048
     Dates: start: 20121117, end: 20121216
  18. PHYTOMENADIONE [Concomitant]
     Indication: NUTRITIONAL SUPPLEMENTATION
     Route: 048
     Dates: start: 20121111, end: 20121206
  19. MULTIVITAMINS [Concomitant]
     Indication: NUTRITIONAL SUPPLEMENTATION
     Route: 048
     Dates: start: 20121115
  20. LORAZEPAM [Concomitant]
     Indication: NAUSEA
     Route: 042
     Dates: start: 20121216

REACTIONS (5)
  - Hypoalbuminaemia [Recovered/Resolved]
  - Hyperbilirubinaemia [Recovered/Resolved]
  - Hypokalaemia [Recovered/Resolved]
  - Hyponatraemia [Recovered/Resolved]
  - Pyrexia [Recovered/Resolved]
